FAERS Safety Report 9197516 (Version 4)
Quarter: 2013Q2

REPORT INFORMATION
  Report Type: Report from Study
  Country: JP (occurrence: JP)
  Receive Date: 20130328
  Receipt Date: 20130502
  Transmission Date: 20140414
  Serious: Yes (Hospitalization)
  Sender: FDA-Public Use
  Company Number: JP-JNJFOC-20130316640

PATIENT
  Age: 77 Year
  Sex: Male

DRUGS (7)
  1. TRAMCET [Suspect]
     Indication: PAIN
     Dosage: 1 PER DAY
     Route: 048
     Dates: start: 20120928, end: 20121004
  2. TRAMCET [Suspect]
     Indication: PAIN
     Dosage: 3 PER DAY
     Route: 048
     Dates: start: 20121010, end: 20130218
  3. TRAMCET [Suspect]
     Indication: PAIN
     Dosage: 2 PER DAY
     Route: 048
     Dates: start: 20121005, end: 20121009
  4. LOXOPROFEN [Suspect]
     Indication: PROCEDURAL PAIN
     Dosage: 1 PER 1 DAY
     Route: 048
     Dates: start: 20130131, end: 20130205
  5. MELOXICAM [Suspect]
     Indication: PAIN
     Dosage: 1 PER DAY
     Route: 048
     Dates: start: 20130212, end: 20130228
  6. FULRUBAN [Concomitant]
     Indication: PAIN
     Dosage: 1 PER 1 DAY
     Route: 062
  7. SHAKUYAKUKANZOUTOU [Concomitant]
     Indication: PAIN
     Dosage: 1 PER 1 DAY
     Route: 048
     Dates: end: 20130218

REACTIONS (1)
  - Haematemesis [Recovered/Resolved]
